FAERS Safety Report 5342401-3 (Version None)
Quarter: 2007Q2

REPORT INFORMATION
  Report Type: 
  Country: None (occurrence: None)
  Receive Date: 20070601
  Receipt Date: 20070521
  Transmission Date: 20071010
  Serious: Yes (Hospitalization, Other)
  Sender: FDA-Public Use
  Company Number: TW-PFIZER INC-2006045202

PATIENT
  Sex: Male
  Weight: 48 kg

DRUGS (2)
  1. SU-011,248 [Suspect]
     Indication: METASTATIC RENAL CELL CARCINOMA
     Route: 048
  2. DEXAMETHASONE TAB [Concomitant]
     Route: 048
     Dates: start: 20060314, end: 20060327

REACTIONS (7)
  - ASCITES [None]
  - DIARRHOEA [None]
  - FEBRILE NEUTROPENIA [None]
  - HYPOALBUMINAEMIA [None]
  - HYPOKALAEMIA [None]
  - SEPSIS [None]
  - THROMBOCYTOPENIA [None]
